FAERS Safety Report 23451976 (Version 10)
Quarter: 2025Q3

REPORT INFORMATION
  Report Type: Report from Study
  Country: US (occurrence: US)
  Receive Date: 20240129
  Receipt Date: 20250821
  Transmission Date: 20251021
  Serious: Yes (Hospitalization)
  Sender: TAKEDA
  Company Number: US-TAKEDA-2023TUS083333

PATIENT
  Age: 74 Year
  Sex: Female
  Weight: 53 kg

DRUGS (30)
  1. TEDUGLUTIDE [Suspect]
     Active Substance: TEDUGLUTIDE
     Indication: Short-bowel syndrome
     Dosage: 2.7 MILLIGRAM, QD
  2. TEDUGLUTIDE [Suspect]
     Active Substance: TEDUGLUTIDE
     Dosage: 2.7 MILLIGRAM, QD
  3. TEDUGLUTIDE [Suspect]
     Active Substance: TEDUGLUTIDE
     Dosage: 2.7 MILLIGRAM, QD
  4. TEDUGLUTIDE [Suspect]
     Active Substance: TEDUGLUTIDE
     Dosage: 2.7 MILLIGRAM, QD
  5. TEDUGLUTIDE [Suspect]
     Active Substance: TEDUGLUTIDE
     Dosage: 2.7 MILLIGRAM, QD
  6. TEDUGLUTIDE [Suspect]
     Active Substance: TEDUGLUTIDE
     Dosage: 2.7 MILLIGRAM, QD
  7. TEDUGLUTIDE [Suspect]
     Active Substance: TEDUGLUTIDE
     Dosage: 2.7 MILLIGRAM, QD
  8. TEDUGLUTIDE [Suspect]
     Active Substance: TEDUGLUTIDE
     Dosage: 2.7 MILLIGRAM, QD
  9. TEDUGLUTIDE [Suspect]
     Active Substance: TEDUGLUTIDE
     Dosage: 2.7 MILLIGRAM, QD
  10. CODEINE [Suspect]
     Active Substance: CODEINE
     Indication: Product used for unknown indication
  11. NITRO-DUR [Concomitant]
     Active Substance: NITROGLYCERIN
  12. SIMVASTATIN [Concomitant]
     Active Substance: SIMVASTATIN
  13. DILTIAZEM [Concomitant]
     Active Substance: DILTIAZEM
     Dosage: UNK UNK, QD
  14. POTASSIUM CHLORIDE [Concomitant]
     Active Substance: POTASSIUM CHLORIDE
  15. IRON [Concomitant]
     Active Substance: IRON
  16. B12 active [Concomitant]
  17. BIOTIN [Concomitant]
     Active Substance: BIOTIN
  18. NITROGLYCERIN [Concomitant]
     Active Substance: NITROGLYCERIN
  19. VITAMIN D3 [Concomitant]
     Active Substance: CHOLECALCIFEROL
  20. MAGNESIUM OXIDE [Concomitant]
     Active Substance: MAGNESIUM OXIDE
  21. VENLAFAXINE HCL [Concomitant]
     Active Substance: VENLAFAXINE HYDROCHLORIDE
     Dosage: UNK UNK, QD
  22. VENLAFAXINE HCL [Concomitant]
     Active Substance: VENLAFAXINE HYDROCHLORIDE
     Dosage: 75 MILLIGRAM, QD
  23. LISINOPRIL [Concomitant]
     Active Substance: LISINOPRIL
  24. IMODIUM A-D [Concomitant]
     Active Substance: LOPERAMIDE HYDROCHLORIDE
  25. IBUPROFEN [Concomitant]
     Active Substance: IBUPROFEN
  26. CODEINE SULFATE [Concomitant]
     Active Substance: CODEINE SULFATE
  27. OMEPRAZOLE [Concomitant]
     Active Substance: OMEPRAZOLE
  28. SULFAMETHOXAZOLE AND TRIMETHOPRIM [Concomitant]
     Active Substance: SULFAMETHOXAZOLE\TRIMETHOPRIM
  29. PROPRANOLOL HYDROCHLORIDE [Concomitant]
     Active Substance: PROPRANOLOL HYDROCHLORIDE
  30. MEMANTINE [Concomitant]
     Active Substance: MEMANTINE

REACTIONS (19)
  - Food poisoning [Unknown]
  - Illness [Unknown]
  - Anaemia [Unknown]
  - Gastrointestinal disorder [Unknown]
  - Wound infection [Unknown]
  - Swelling face [Unknown]
  - Drug hypersensitivity [Unknown]
  - Dyspepsia [Unknown]
  - Muscle spasms [Unknown]
  - Pain [Recovering/Resolving]
  - Insurance issue [Unknown]
  - Haemorrhage [Unknown]
  - Product use issue [Unknown]
  - Malaise [Unknown]
  - Fatigue [Unknown]
  - Sinusitis [Unknown]
  - Nausea [Recovering/Resolving]
  - Vomiting [Unknown]
  - Abdominal pain upper [Unknown]

NARRATIVE: CASE EVENT DATE: 20240315
